FAERS Safety Report 20406860 (Version 4)
Quarter: 2025Q1

REPORT INFORMATION
  Report Type: Spontaneous
  Country: FR (occurrence: FR)
  Receive Date: 20220131
  Receipt Date: 20250327
  Transmission Date: 20250409
  Serious: Yes (Other)
  Sender: BRISTOL-MYERS SQUIBB COMPANY
  Company Number: FR-BRISTOL-MYERS SQUIBB COMPANY-BMS-2022-009387

PATIENT
  Age: 22 Year

DRUGS (5)
  1. IPILIMUMAB [Suspect]
     Active Substance: IPILIMUMAB
     Indication: Renal cancer metastatic
  2. NIVOLUMAB [Suspect]
     Active Substance: NIVOLUMAB
     Indication: Renal cancer metastatic
  3. CABOMETYX [Suspect]
     Active Substance: CABOZANTINIB S-MALATE
     Indication: Renal cancer metastatic
  4. CABOMETYX [Suspect]
     Active Substance: CABOZANTINIB S-MALATE
  5. AXITINIB [Suspect]
     Active Substance: AXITINIB
     Indication: Renal cancer metastatic

REACTIONS (2)
  - Diabetes mellitus [Unknown]
  - Weight decreased [Unknown]
